FAERS Safety Report 7677038-4 (Version None)
Quarter: 2011Q3

REPORT INFORMATION
  Report Type: 
  Country: None (occurrence: None)
  Receive Date: 20110811
  Receipt Date: 20110805
  Transmission Date: 20111222
  Serious: Yes (Hospitalization)
  Sender: FDA-Public Use
  Company Number: DE-SANOFI-AVENTIS-2011SA050143

PATIENT
  Age: 71 Year
  Sex: Female

DRUGS (6)
  1. MULTAQ [Suspect]
     Indication: ATRIAL FIBRILLATION
     Route: 048
     Dates: start: 20101101
  2. PHENPROCOUMON [Concomitant]
     Route: 048
  3. BETA BLOCKING AGENTS [Concomitant]
     Route: 048
  4. ACE INHIBITOR NOS [Concomitant]
     Route: 048
  5. DIURETICS [Concomitant]
     Route: 048
  6. HMG COA REDUCTASE INHIBITORS [Concomitant]
     Route: 048

REACTIONS (3)
  - PROTHROMBIN TIME PROLONGED [None]
  - DRUG INTERACTION [None]
  - VITREOUS HAEMORRHAGE [None]
